FAERS Safety Report 7864239-5 (Version None)
Quarter: 2011Q4

REPORT INFORMATION
  Report Type: 
  Country: None (occurrence: None)
  Receive Date: 20111028
  Receipt Date: 20111025
  Transmission Date: 20120403
  Serious: Yes (Other)
  Sender: FDA-Public Use
  Company Number: US-PFIZER INC-2011236973

PATIENT
  Sex: Female
  Weight: 104.31 kg

DRUGS (2)
  1. PROZAC [Concomitant]
     Dosage: 20 MG DAILY
     Route: 048
  2. LYRICA [Suspect]
     Indication: FIBROMYALGIA
     Dosage: 75 MG, 2X/DAY
     Route: 048
     Dates: start: 20110601, end: 20110915

REACTIONS (3)
  - SUICIDAL BEHAVIOUR [None]
  - WITHDRAWAL SYNDROME [None]
  - PAIN [None]
